FAERS Safety Report 5943959-3 (Version None)
Quarter: 2008Q4

REPORT INFORMATION
  Report Type: 
  Country: None (occurrence: None)
  Receive Date: 20081106
  Receipt Date: 20081027
  Transmission Date: 20090506
  Serious: Yes (Other)
  Sender: FDA-Public Use
  Company Number: US-CELGENEUS-163-21880-08101806

PATIENT
  Sex: Male

DRUGS (2)
  1. REVLIMID [Suspect]
     Indication: MULTIPLE MYELOMA
     Route: 048
     Dates: start: 20070917
  2. DEXAMETHASONE [Concomitant]
     Route: 065

REACTIONS (4)
  - BLOOD PRESSURE FLUCTUATION [None]
  - HEART RATE DECREASED [None]
  - HEART RATE IRREGULAR [None]
  - WHITE BLOOD CELL COUNT DECREASED [None]
